FAERS Safety Report 6624221-2 (Version None)
Quarter: 2010Q1

REPORT INFORMATION
  Report Type: 
  Country: None (occurrence: None)
  Receive Date: 20100310
  Receipt Date: 20091103
  Transmission Date: 20100710
  Serious: No
  Sender: FDA-Public Use
  Company Number: US-BIOGENIDEC-2009BI035329

PATIENT
  Sex: Female

DRUGS (5)
  1. AVONEX [Suspect]
     Indication: MULTIPLE SCLEROSIS
     Route: 030
     Dates: start: 19960101, end: 20030101
  2. AVONEX [Suspect]
     Route: 030
     Dates: start: 20030101, end: 20070101
  3. AVONEX [Suspect]
     Route: 030
     Dates: start: 20070101
  4. BACLOFEN [Concomitant]
     Indication: MUSCLE SPASTICITY
     Route: 048
  5. BACLOFEN [Concomitant]
     Route: 048

REACTIONS (13)
  - ABNORMAL SENSATION IN EYE [None]
  - ANXIETY [None]
  - ASTHMA [None]
  - CATARACT [None]
  - DEPRESSION [None]
  - DIZZINESS [None]
  - HYPERTENSION [None]
  - INJECTION SITE HAEMORRHAGE [None]
  - MICTURITION URGENCY [None]
  - MULTIPLE SCLEROSIS RELAPSE [None]
  - MUSCLE SPASTICITY [None]
  - RETINAL DETACHMENT [None]
  - TREMOR [None]
